FAERS Safety Report 7797699-9 (Version None)
Quarter: 2011Q4

REPORT INFORMATION
  Report Type: 
  Country: None (occurrence: None)
  Receive Date: 20111005
  Receipt Date: 20110927
  Transmission Date: 20120403
  Serious: Yes (Hospitalization)
  Sender: FDA-Public Use
  Company Number: PHHY2011CA86507

PATIENT
  Sex: Female

DRUGS (1)
  1. SANDOSTATIN LAR [Suspect]
     Indication: ENTEROCUTANEOUS FISTULA
     Dosage: 30 MG, QMO
     Route: 030
     Dates: start: 20110908

REACTIONS (2)
  - ABSCESS [None]
  - INFECTION [None]
